FAERS Safety Report 6172076-5 (Version None)
Quarter: 2009Q2

REPORT INFORMATION
  Report Type: 
  Country: None (occurrence: None)
  Receive Date: 20090428
  Receipt Date: 20090428
  Transmission Date: 20091009
  Serious: No
  Sender: FDA-Public Use
  Company Number: None

PATIENT
  Age: 20 Year
  Sex: Male
  Weight: 141.5223 kg

DRUGS (1)
  1. VALPROIC ACID [Suspect]
     Dosage: 1750 MG DAILY PERIARTICULAR
     Route: 052

REACTIONS (1)
  - PANCREATITIS ACUTE [None]
